FAERS Safety Report 13568355 (Version 3)
Quarter: 2017Q2

REPORT INFORMATION
  Report Type: Report from Study
  Country: CA (occurrence: CA)
  Receive Date: 20170522
  Receipt Date: 20170622
  Transmission Date: 20170830
  Serious: Yes (Other)
  Sender: FDA-Public Use
  Company Number: CA-JNJFOC-20170515936

PATIENT
  Age: 60 Year
  Sex: Female
  Weight: 52.16 kg

DRUGS (1)
  1. SIMPONI [Suspect]
     Active Substance: GOLIMUMAB
     Indication: COLITIS ULCERATIVE
     Route: 058
     Dates: start: 20170128

REACTIONS (3)
  - Frequent bowel movements [Unknown]
  - Haematochezia [Unknown]
  - Mucous stools [Unknown]

NARRATIVE: CASE EVENT DATE: 20170426
